FAERS Safety Report 10024131 (Version 1)
Quarter: 2014Q1

REPORT INFORMATION
  Report Type: Spontaneous
  Country: GB (occurrence: None)
  Receive Date: 20140127
  Receipt Date: 20140127
  Transmission Date: 20141002
  Serious: Yes (Hospitalization)
  Sender: FDA-Public Use
  Company Number: OMB114578

PATIENT
  Age: 80 Year
  Sex: Male

DRUGS (8)
  1. CHLORAMBUCIL [Suspect]
     Indication: CHRONIC LYMPHOCYTIC LEUKAEMIA
  2. PARACETAMOL (PRACETAMOL) [Concomitant]
  3. CHLORPHENIRAMINE [Concomitant]
  4. PREDNISOLONE [Concomitant]
  5. ALLOPURINOL [Concomitant]
  6. METOCLOPRAMIDE [Concomitant]
  7. GRANULOCYTE COLONY-STIMULATING FACTOR NOS [Concomitant]
  8. SIMVASTATIN [Concomitant]

REACTIONS (1)
  - Lower respiratory tract infection [None]
